FAERS Safety Report 10235615 (Version 1)
Quarter: 2014Q2

REPORT INFORMATION
  Report Type: Spontaneous
  Country: US (occurrence: US)
  Receive Date: 20140613
  Receipt Date: 20140613
  Transmission Date: 20141212
  Serious: No
  Sender: FDA-Public Use
  Company Number: US-BAYER-2014-088770

PATIENT
  Age: 68 Year
  Sex: Female

DRUGS (1)
  1. EOVIST [Suspect]
     Indication: LIVER SCAN
     Dosage: 10 ML, ONCE
     Route: 042

REACTIONS (1)
  - Dyspnoea [None]
